FAERS Safety Report 25597642 (Version 1)
Quarter: 2025Q3

REPORT INFORMATION
  Report Type: Spontaneous
  Country: US (occurrence: US)
  Receive Date: 20250723
  Receipt Date: 20250723
  Transmission Date: 20251021
  Serious: Yes (Hospitalization, Other)
  Sender: ALEMBIC
  Company Number: US-ALEMBIC PHARMACUETICALS LIMITED-2025SCAL000828

PATIENT

DRUGS (2)
  1. METOPROLOL TARTRATE [Suspect]
     Active Substance: METOPROLOL TARTRATE
     Indication: Hypertension
     Route: 065
  2. DILTIAZEM HYDROCHLORIDE [Suspect]
     Active Substance: DILTIAZEM HYDROCHLORIDE
     Indication: Hypertension
     Route: 065

REACTIONS (12)
  - BRASH syndrome [Unknown]
  - Renal failure [Unknown]
  - Shock [Unknown]
  - Hyperkalaemia [Unknown]
  - Hypoxia [Unknown]
  - Lactic acidosis [Recovered/Resolved]
  - Cardiac contractility decreased [Unknown]
  - Metabolic acidosis [Unknown]
  - Hypotension [Unknown]
  - Lethargy [Unknown]
  - Dyspnoea [Unknown]
  - Bradycardia [Unknown]
